FAERS Safety Report 7427554-5 (Version None)
Quarter: 2011Q2

REPORT INFORMATION
  Report Type: 
  Country: None (occurrence: None)
  Receive Date: 20110420
  Receipt Date: 20110412
  Transmission Date: 20111010
  Serious: Yes (Other)
  Sender: FDA-Public Use
  Company Number: JP-MERCK-1104USA02128

PATIENT
  Age: 63 Year
  Sex: Female
  Weight: 60 kg

DRUGS (7)
  1. CEFAZOLIN [Concomitant]
     Route: 065
  2. HEPARIN [Concomitant]
     Route: 065
  3. PHENOBARBITAL [Concomitant]
     Route: 065
  4. FASUDIL HYDROCHLORIDE [Concomitant]
     Route: 065
  5. PEPCID [Suspect]
     Route: 048
  6. CARBAZOCHROME [Concomitant]
     Route: 065
  7. TRANEXAMIC ACID [Concomitant]
     Route: 065

REACTIONS (6)
  - PULMONARY EMBOLISM [None]
  - CEREBROVASCULAR SPASM [None]
  - EPISTAXIS [None]
  - MOUTH HAEMORRHAGE [None]
  - URINARY TRACT INFECTION [None]
  - CEREBRAL INFARCTION [None]
